FAERS Safety Report 4583804-4 (Version None)
Quarter: 2005Q1

REPORT INFORMATION
  Report Type: 
  Country: None (occurrence: None)
  Receive Date: 20050211
  Receipt Date: 20050131
  Transmission Date: 20050727
  Serious: Yes (Hospitalization)
  Sender: FDA-Public Use
  Company Number: MEDI-0002824

PATIENT
  Age: 49 Year
  Sex: Female

DRUGS (4)
  1. ETHYOL [Suspect]
     Indication: CHEMOTHERAPY
     Dosage: 500 MG, SUBCUTANEOUS
     Route: 058
     Dates: end: 20050106
  2. ETHYOL [Suspect]
     Indication: RADIOTHERAPY
     Dosage: 500 MG, SUBCUTANEOUS
     Route: 058
     Dates: end: 20050106
  3. RADIATION THERAPY [Concomitant]
  4. CHEMOTHERAPY [Concomitant]

REACTIONS (5)
  - DRY SKIN [None]
  - LIP DISORDER [None]
  - PERIORBITAL OEDEMA [None]
  - RASH ERYTHEMATOUS [None]
  - SKIN HYPERTROPHY [None]
